FAERS Safety Report 26174522 (Version 1)
Quarter: 2025Q4

REPORT INFORMATION
  Report Type: Other
  Country: CN (occurrence: CN)
  Receive Date: 20251218
  Receipt Date: 20251218
  Transmission Date: 20260118
  Serious: Yes (Hospitalization)
  Sender: INCYTE
  Company Number: CN-INNOVENTBIO-INN2025012570

PATIENT
  Age: 63 Year
  Weight: 60 kg

DRUGS (1)
  1. PEMAZYRE [Suspect]
     Active Substance: PEMIGATINIB
     Indication: Hepatic cancer
     Dosage: 9 MG
     Route: 061

REACTIONS (1)
  - Gastrointestinal disorder [Recovering/Resolving]
